FAERS Safety Report 5874963-1 (Version None)
Quarter: 2008Q3

REPORT INFORMATION
  Report Type: 
  Country: None (occurrence: None)
  Receive Date: 20080908
  Receipt Date: 20080908
  Transmission Date: 20090109
  Serious: No
  Sender: FDA-Public Use
  Company Number: None

PATIENT
  Age: 16 Year
  Sex: Female
  Weight: 47 kg

DRUGS (1)
  1. ACCUTANE [Suspect]
     Indication: ACNE
     Dates: start: 19890101, end: 20080907

REACTIONS (6)
  - CONGENITAL ANOMALY [None]
  - CONGENITAL RENAL DISORDER [None]
  - DRUG EXPOSURE DURING PREGNANCY [None]
  - KIDNEY MALFORMATION [None]
  - PATERNAL DRUGS AFFECTING FOETUS [None]
  - RENAL FAILURE [None]
